FAERS Safety Report 17664124 (Version 1)
Quarter: 2020Q2

REPORT INFORMATION
  Report Type: Spontaneous
  Country: TH (occurrence: TH)
  Receive Date: 20200414
  Receipt Date: 20200414
  Transmission Date: 20200713
  Serious: Yes (Death, Hospitalization, Other)
  Sender: FDA-Public Use
  Company Number: TH-AMGEN-THASP2020043702

PATIENT
  Age: 6 Year
  Sex: Male
  Weight: 24 kg

DRUGS (3)
  1. VORICONAZOLE. [Concomitant]
     Active Substance: VORICONAZOLE
     Dosage: UNK
  2. BLINCYTO [Suspect]
     Active Substance: BLINATUMOMAB
     Indication: B PRECURSOR TYPE ACUTE LEUKAEMIA
     Dosage: 5 MICROGRAM/SQ. METER, QD FOR ONE WEEK
     Route: 041
     Dates: start: 20200228, end: 20200305
  3. BLINCYTO [Suspect]
     Active Substance: BLINATUMOMAB
     Dosage: 15 MICROGRAM/SQ. METER, QD
     Route: 041
     Dates: start: 20200306, end: 20200316

REACTIONS (7)
  - Pulmonary haemorrhage [Fatal]
  - Pyrexia [Recovered/Resolved]
  - Acute lymphocytic leukaemia recurrent [Fatal]
  - Bronchopulmonary aspergillosis [Fatal]
  - Febrile neutropenia [Recovered/Resolved]
  - Enteritis [Recovered/Resolved]
  - Hypertension [Recovered/Resolved]

NARRATIVE: CASE EVENT DATE: 20200228
